FAERS Safety Report 9159214 (Version 1)
Quarter: 2013Q1

REPORT INFORMATION
  Report Type: Spontaneous
  Country: US (occurrence: None)
  Receive Date: 20130213
  Receipt Date: 20130213
  Transmission Date: 20140127
  Serious: Yes (Hospitalization)
  Sender: FDA-Public Use
  Company Number: 2523595-2013-00008

PATIENT
  Age: 38 Year
  Sex: Female
  Weight: 60.4 kg

DRUGS (1)
  1. UVADEX [Suspect]
     Indication: CHRONIC GRAFT VERSUS HOST DISEASE
     Dates: start: 20130129

REACTIONS (2)
  - Nausea [None]
  - Vomiting [None]
